FAERS Safety Report 4276666-6 (Version None)
Quarter: 2004Q1

REPORT INFORMATION
  Report Type: 
  Country: None (occurrence: None)
  Receive Date: 20040120
  Receipt Date: 20031017
  Transmission Date: 20041129
  Serious: Yes (Death, Hospitalization)
  Sender: FDA-Public Use
  Company Number: S03-FRA-04429-01

PATIENT
  Sex: Male

DRUGS (1)
  1. EBIXA (MEMANTINE) [Suspect]

REACTIONS (5)
  - ABNORMAL BEHAVIOUR [None]
  - CEREBROVASCULAR ACCIDENT [None]
  - CONFUSIONAL STATE [None]
  - HYPERTENSION [None]
  - RENAL FAILURE [None]
